FAERS Safety Report 10374502 (Version 3)
Quarter: 2014Q3

REPORT INFORMATION
  Report Type: Spontaneous
  Country: US (occurrence: US)
  Receive Date: 20140811
  Receipt Date: 20140819
  Transmission Date: 20150326
  Serious: Yes (Hospitalization, Other)
  Sender: FDA-Public Use
  Company Number: US-UNITED THERAPEUTICS-UNT-2014-004939

PATIENT
  Age: 24 Year
  Sex: Female
  Weight: 141.95 kg

DRUGS (7)
  1. REMODULIN [Suspect]
     Active Substance: TREPROSTINIL
     Indication: PULMONARY HYPERTENSION
     Dosage: 0.052 ?G/KG, CONTINUING
     Route: 058
     Dates: start: 20140522
  2. LETAIRIS [Concomitant]
     Active Substance: AMBRISENTAN
     Indication: PRODUCT USED FOR UNKNOWN INDICATION
     Dosage: 5 MG, QD
  3. TYLENOL [Concomitant]
     Active Substance: ACETAMINOPHEN
     Indication: PRODUCT USED FOR UNKNOWN INDICATION
  4. PREDNISONE. [Concomitant]
     Active Substance: PREDNISONE
     Indication: PRODUCT USED FOR UNKNOWN INDICATION
     Dosage: 50 MG, QD
  5. REMODULIN [Suspect]
     Active Substance: TREPROSTINIL
     Indication: COR PULMONALE CHRONIC
     Dosage: 0.038 ?G/KG, CONTINUING
     Route: 058
     Dates: start: 20140522
  6. HYDROXYCHLOROQUINE [Concomitant]
     Active Substance: HYDROXYCHLOROQUINE
     Indication: PRODUCT USED FOR UNKNOWN INDICATION
     Dosage: 200 MG, BID
  7. LASIX [Concomitant]
     Active Substance: FUROSEMIDE
     Indication: PRODUCT USED FOR UNKNOWN INDICATION

REACTIONS (22)
  - Acute prerenal failure [Unknown]
  - Infusion site haemorrhage [Unknown]
  - Lipase increased [Unknown]
  - Dizziness [Unknown]
  - Infusion site warmth [Unknown]
  - Pyrexia [Unknown]
  - Vomiting [Recovering/Resolving]
  - Dehydration [Unknown]
  - Abdominal pain [Unknown]
  - Hypovolaemia [Unknown]
  - Injection site discharge [Unknown]
  - Infusion site erythema [Unknown]
  - Malaise [Unknown]
  - Rash [Unknown]
  - Renal failure acute [Unknown]
  - Diarrhoea [Recovering/Resolving]
  - Blood creatinine increased [Unknown]
  - Infusion site pain [Unknown]
  - Retroperitoneal lymphadenopathy [Unknown]
  - Hypertension [Unknown]
  - Urinary tract infection [Unknown]
  - Nausea [Recovering/Resolving]

NARRATIVE: CASE EVENT DATE: 20140728
